FAERS Safety Report 13777275 (Version 1)
Quarter: 2017Q3

REPORT INFORMATION
  Report Type: Report from Study
  Country: US (occurrence: US)
  Receive Date: 20170721
  Receipt Date: 20170721
  Transmission Date: 20171127
  Serious: Yes (Other)
  Sender: FDA-Public Use
  Company Number: US-SA-2017SA105369

PATIENT
  Age: 56 Year
  Sex: Female

DRUGS (1)
  1. CAMPATH [Suspect]
     Active Substance: ALEMTUZUMAB
     Route: 041

REACTIONS (2)
  - Ill-defined disorder [Unknown]
  - Pneumonia viral [Unknown]
